FAERS Safety Report 16240720 (Version 1)
Quarter: 2019Q2

REPORT INFORMATION
  Report Type: Spontaneous
  Country: US (occurrence: US)
  Receive Date: 20190425
  Receipt Date: 20190425
  Transmission Date: 20190711
  Serious: No
  Sender: FDA-Public Use
  Company Number: US-MTPC-MTDA2019-0048098

PATIENT

DRUGS (2)
  1. RADICAVA [Suspect]
     Active Substance: EDARAVONE
     Indication: AMYOTROPHIC LATERAL SCLEROSIS
     Dosage: UNK
     Route: 065
  2. RADICAVA [Suspect]
     Active Substance: EDARAVONE
     Dosage: UNK, 15 DAYS A MONTH
     Route: 065

REACTIONS (1)
  - Inappropriate schedule of product administration [Not Recovered/Not Resolved]
